FAERS Safety Report 14826544 (Version 1)
Quarter: 2018Q2

REPORT INFORMATION
  Report Type: Spontaneous
  Country: ES (occurrence: ES)
  Receive Date: 20180430
  Receipt Date: 20180430
  Transmission Date: 20180711
  Serious: Yes (Death)
  Sender: FDA-Public Use
  Company Number: ES-MYLANLABS-2018M1028479

PATIENT
  Age: 78 Year
  Sex: Male

DRUGS (7)
  1. FENTANYL MYLAN [Suspect]
     Active Substance: FENTANYL
     Dosage: 50 ?G, Q3D
  2. PARACETAMOL MYLAN [Suspect]
     Active Substance: ACETAMINOPHEN
     Indication: PRODUCT USED FOR UNKNOWN INDICATION
     Dosage: 1 G, Q8H
  3. PREGABALIN MYLAN [Suspect]
     Active Substance: PREGABALIN
     Indication: PRODUCT USED FOR UNKNOWN INDICATION
     Dosage: 75 MG, QD, AT NIGHT
  4. BREAKYL [Suspect]
     Active Substance: FENTANYL
     Indication: BREAKTHROUGH PAIN
     Dosage: 200 ?G, 1-2 PER DAY (10 MINUTES BEFORE MEALS)
  5. BREAKYL [Suspect]
     Active Substance: FENTANYL
     Dosage: 400 ?G, 1-2 PER DAY (10 MINUTES BEFORE MEALS)
  6. AMITRIPTYLINE [Suspect]
     Active Substance: AMITRIPTYLINE
     Indication: PRODUCT USED FOR UNKNOWN INDICATION
     Dosage: 190 MG, QD
  7. FENTANYL MYLAN [Suspect]
     Active Substance: FENTANYL
     Indication: PRODUCT USED FOR UNKNOWN INDICATION
     Dosage: 25 ?G, Q3D

REACTIONS (1)
  - Disease progression [Fatal]
